FAERS Safety Report 13673270 (Version 1)
Quarter: 2017Q2

REPORT INFORMATION
  Report Type: Spontaneous
  Country: US (occurrence: US)
  Receive Date: 20170621
  Receipt Date: 20170621
  Transmission Date: 20170830
  Serious: No
  Sender: FDA-Public Use
  Company Number: US-TEVA-764665ACC

PATIENT
  Sex: Male

DRUGS (1)
  1. DORZOLAMIDE HCL OPHTH SOL 2 PERCENT 10 ML ACTAVIS [Suspect]
     Active Substance: DORZOLAMIDE HYDROCHLORIDE

REACTIONS (2)
  - Vision blurred [Unknown]
  - No reaction on previous exposure to drug [None]
